FAERS Safety Report 13521933 (Version 2)
Quarter: 2017Q2

REPORT INFORMATION
  Report Type: Spontaneous
  Country: IL (occurrence: IL)
  Receive Date: 20170508
  Receipt Date: 20170620
  Transmission Date: 20170830
  Serious: Yes (Other)
  Sender: FDA-Public Use
  Company Number: IL-NOVOPROD-542837

PATIENT
  Age: 64 Year
  Sex: Female

DRUGS (1)
  1. VICTOZA [Suspect]
     Active Substance: LIRAGLUTIDE
     Indication: PRODUCT USED FOR UNKNOWN INDICATION
     Dosage: 1.8 MG, QD (FOR 2 YEARS)
     Route: 058

REACTIONS (3)
  - Carbohydrate antigen 19-9 increased [Unknown]
  - Tumour marker increased [Unknown]
  - Alpha 1 foetoprotein increased [Unknown]
